FAERS Safety Report 7335484-2 (Version None)
Quarter: 2011Q1

REPORT INFORMATION
  Report Type: 
  Country: None (occurrence: None)
  Receive Date: 20110302
  Receipt Date: 20110302
  Transmission Date: 20110831
  Serious: No
  Sender: FDA-Public Use
  Company Number: None

PATIENT
  Sex: Male
  Weight: 56.6 kg

DRUGS (8)
  1. METHOTREXATE [Suspect]
     Dosage: 45 MG
     Dates: end: 20100910
  2. CYTARABINE [Suspect]
     Dosage: 968 MG
     Dates: end: 20100913
  3. DEXAMETHASONE [Suspect]
     Dosage: 224 MG
     Dates: end: 20100819
  4. PEG-L ASPARAGINASE (PEGASPARGASE, ONCOSPAR) [Suspect]
     Dosage: 7975 IU
     Dates: end: 20100917
  5. CYCLOPHOSPHAMIDE [Suspect]
     Dosage: 1610 MG
     Dates: end: 20100903
  6. THIOGUANINE [Suspect]
     Dosage: 1320 MG
     Dates: end: 20100916
  7. VINCRISTINE SULFATE [Suspect]
     Dosage: 8 MG
     Dates: end: 20100924
  8. DOXORUBICIN HCL [Suspect]
     Dosage: 118.5 MG
     Dates: end: 20100813

REACTIONS (1)
  - BLOOD GLUCOSE INCREASED [None]
